FAERS Safety Report 10589541 (Version 2)
Quarter: 2015Q1

REPORT INFORMATION
  Report Type: Spontaneous
  Country: CA (occurrence: None)
  Receive Date: 20141114
  Receipt Date: 20150112
  Transmission Date: 20150720
  Serious: Yes (Hospitalization, Other)
  Sender: FDA-Public Use
  Company Number: CA2014GSK003792

PATIENT
  Age: 27 Year
  Sex: Male

DRUGS (6)
  1. FINASTERIDE. [Concomitant]
     Active Substance: FINASTERIDE
  2. KIVEXA [Suspect]
     Active Substance: ABACAVIR SULFATE\LAMIVUDINE
     Indication: HIV INFECTION
     Route: 048
     Dates: start: 20140819, end: 20140825
  3. VIT C (ASCORBIC ACID) [Concomitant]
  4. TIVICAY [Suspect]
     Active Substance: DOLUTEGRAVIR SODIUM
     Indication: HIV INFECTION
     Route: 048
     Dates: start: 20140819, end: 20140825
  5. IBUPROFEN. [Concomitant]
     Active Substance: IBUPROFEN
  6. ZINC [Concomitant]
     Active Substance: ZINC\ZINC CHLORIDE

REACTIONS (5)
  - Hypotension [None]
  - Headache [None]
  - Bradycardia [None]
  - Drug hypersensitivity [None]
  - Impaired work ability [None]

NARRATIVE: CASE EVENT DATE: 20140823
